FAERS Safety Report 11993495 (Version 2)
Quarter: 2016Q2

REPORT INFORMATION
  Report Type: Spontaneous
  Country: US (occurrence: US)
  Receive Date: 20160203
  Receipt Date: 20160421
  Transmission Date: 20160815
  Serious: No
  Sender: FDA-Public Use
  Company Number: US-PFIZER INC-2016014716

PATIENT
  Age: 68 Year
  Sex: Female
  Weight: 107 kg

DRUGS (4)
  1. DIGOXIN. [Concomitant]
     Active Substance: DIGOXIN
     Indication: CARDIAC DISORDER
     Dosage: 125 UG, 1X/DAY
  2. CENTRUM SILVER ADULTS 50+ [Concomitant]
     Active Substance: MINERALS\VITAMINS
     Indication: SUPPLEMENTATION THERAPY
     Dosage: 1 DF, 1X/DAY
  3. LIDOCAINE HCL [Suspect]
     Active Substance: LIDOCAINE HYDROCHLORIDE
     Dosage: UNK
  4. ESTER-C [Concomitant]
     Active Substance: CALCIUM\VITAMINS
     Indication: VITAMIN C DEFICIENCY
     Dosage: 1000 MG, UNK

REACTIONS (1)
  - Drug effect incomplete [Unknown]
